FAERS Safety Report 7749935-2 (Version None)
Quarter: 2011Q3

REPORT INFORMATION
  Report Type: 
  Country: None (occurrence: None)
  Receive Date: 20110914
  Receipt Date: 20110906
  Transmission Date: 20111222
  Serious: Yes (Other)
  Sender: FDA-Public Use
  Company Number: US-AMGEN-USASP2011045406

PATIENT
  Age: 60 Year
  Sex: Female

DRUGS (1)
  1. ENBREL [Suspect]
     Indication: RHEUMATOID ARTHRITIS
     Dosage: 50 MG, QWK
     Dates: start: 20110609

REACTIONS (8)
  - DYSPNOEA [None]
  - MUSCULOSKELETAL STIFFNESS [None]
  - INJECTION SITE VESICLES [None]
  - INJECTION SITE EXTRAVASATION [None]
  - MUSCULOSKELETAL PAIN [None]
  - FALL [None]
  - INJECTION SITE PAIN [None]
  - FATIGUE [None]
